FAERS Safety Report 15378940 (Version 1)
Quarter: 2018Q3

REPORT INFORMATION
  Report Type: Spontaneous
  Country: US (occurrence: US)
  Receive Date: 20180906
  Receipt Date: 20180906
  Transmission Date: 20181010
  Serious: Yes (Life-Threatening)
  Sender: FDA-Public Use
  Company Number: None

PATIENT
  Age: 45 Year
  Sex: Female
  Weight: 81 kg

DRUGS (3)
  1. TUMERIC [Concomitant]
     Active Substance: HERBALS\TURMERIC
  2. TRAMADOL 50 MG 3X DAILY [Suspect]
     Active Substance: TRAMADOL
     Indication: PAIN
     Dosage: ?          QUANTITY:20 DF DOSAGE FORM;?
     Route: 048
     Dates: start: 20180825, end: 20180827
  3. EFFEXOR [Concomitant]
     Active Substance: VENLAFAXINE HYDROCHLORIDE

REACTIONS (9)
  - Hyperhidrosis [None]
  - Crying [None]
  - Dyspnoea [None]
  - Self esteem decreased [None]
  - Presyncope [None]
  - Fatigue [None]
  - Anger [None]
  - Drug interaction [None]
  - Balance disorder [None]

NARRATIVE: CASE EVENT DATE: 20180825
